FAERS Safety Report 13829021 (Version 1)
Quarter: 2017Q3

REPORT INFORMATION
  Report Type: Spontaneous
  Country: US (occurrence: US)
  Receive Date: 20170803
  Receipt Date: 20170803
  Transmission Date: 20171127
  Serious: Yes (Death, Life-Threatening, Other)
  Sender: FDA-Public Use
  Company Number: None

PATIENT
  Age: 60 Year
  Sex: Male
  Weight: 79.4 kg

DRUGS (26)
  1. HYDRALAZINE [Concomitant]
     Active Substance: HYDRALAZINE HYDROCHLORIDE
  2. INSULIN LISPRO [Concomitant]
     Active Substance: INSULIN LISPRO
  3. ZOSYN [Concomitant]
     Active Substance: PIPERACILLIN SODIUM\TAZOBACTAM SODIUM
  4. URSODIOL. [Concomitant]
     Active Substance: URSODIOL
  5. CELLCEPT [Concomitant]
     Active Substance: MYCOPHENOLATE MOFETIL\MYCOPHENOLATE MOFETIL HYDROCHLORIDE
  6. PREDNISONE. [Concomitant]
     Active Substance: PREDNISONE
  7. VANCOMYCIN [Concomitant]
     Active Substance: VANCOMYCIN
  8. FLUCONAZOLE. [Concomitant]
     Active Substance: FLUCONAZOLE
  9. FOLIC ACID. [Concomitant]
     Active Substance: FOLIC ACID
  10. SOLU-MEDROL [Concomitant]
     Active Substance: METHYLPREDNISOLONE SODIUM SUCCINATE
  11. PROGRAF [Concomitant]
     Active Substance: TACROLIMUS\TACROLIMUS ANHYDROUS
  12. HEPARIN [Concomitant]
     Active Substance: HEPARIN SODIUM
  13. TPN [Concomitant]
     Active Substance: AMINO ACIDS\DEXTROSE\ELECTROLYTES NOS\SOYBEAN OIL
  14. DAPSONE. [Concomitant]
     Active Substance: DAPSONE
  15. VALCYTE [Concomitant]
     Active Substance: VALGANCICLOVIR HYDROCHLORIDE
  16. ELIQUIS [Suspect]
     Active Substance: APIXABAN
     Indication: PORTAL VEIN THROMBOSIS
     Route: 048
     Dates: start: 20170719, end: 20170720
  17. GANCICLOVIR. [Concomitant]
     Active Substance: GANCICLOVIR
  18. ASPIRIN. [Concomitant]
     Active Substance: ASPIRIN
  19. FENTANYL. [Concomitant]
     Active Substance: FENTANYL
  20. PROTONIX [Concomitant]
     Active Substance: PANTOPRAZOLE SODIUM
  21. THIAMINE. [Concomitant]
     Active Substance: THIAMINE
  22. ALBUMIN [Concomitant]
     Active Substance: ALBUMIN HUMAN
  23. MAGNESIUM SULFATE. [Concomitant]
     Active Substance: MAGNESIUM SULFATE
  24. FLOMAX [Concomitant]
     Active Substance: TAMSULOSIN HYDROCHLORIDE
  25. FUROSEMIDE. [Concomitant]
     Active Substance: FUROSEMIDE
  26. DILAUDID [Concomitant]
     Active Substance: HYDROMORPHONE HYDROCHLORIDE

REACTIONS (2)
  - Haemorrhage intracranial [None]
  - Mental status changes [None]

NARRATIVE: CASE EVENT DATE: 20170721
